FAERS Safety Report 18947775 (Version 1)
Quarter: 2021Q1

REPORT INFORMATION
  Report Type: Report from Study
  Country: US (occurrence: US)
  Receive Date: 20210227
  Receipt Date: 20210227
  Transmission Date: 20210420
  Serious: Yes (Other)
  Sender: FDA-Public Use
  Company Number: US-UCBSA-2021008733

PATIENT
  Sex: Female

DRUGS (3)
  1. DILANTIN [Concomitant]
     Active Substance: PHENYTOIN
     Indication: PRODUCT USED FOR UNKNOWN INDICATION
  2. LACOSAMIDE. [Suspect]
     Active Substance: LACOSAMIDE
     Indication: EPILEPSY
  3. TEGRETOL [Concomitant]
     Active Substance: CARBAMAZEPINE
     Indication: PRODUCT USED FOR UNKNOWN INDICATION

REACTIONS (7)
  - Partial seizures [Unknown]
  - Nausea [Unknown]
  - Maternal exposure during breast feeding [Unknown]
  - Fatigue [Unknown]
  - Maternal exposure during pregnancy [Unknown]
  - Feeling drunk [Unknown]
  - Myoclonic epilepsy [Unknown]
